FAERS Safety Report 6551511-4 (Version None)
Quarter: 2010Q1

REPORT INFORMATION
  Report Type: 
  Country: None (occurrence: None)
  Receive Date: 20100126
  Receipt Date: 20100114
  Transmission Date: 20100710
  Serious: Yes (Hospitalization)
  Sender: FDA-Public Use
  Company Number: IT-BRACCO-000608

PATIENT
  Sex: Female
  Weight: 60 kg

DRUGS (8)
  1. EBRANTIL [Concomitant]
     Dates: start: 20091223
  2. OXYGEN [Concomitant]
     Route: 055
     Dates: start: 20091223, end: 20091223
  3. LASIX [Concomitant]
     Dates: start: 20091223
  4. CETIRIZINE HCL [Concomitant]
  5. DELTACORTENE [Concomitant]
     Dates: start: 20091223, end: 20091223
  6. CETIRIZINE HCL [Concomitant]
     Dates: start: 20091223, end: 20091223
  7. RANITIDINA [Concomitant]
     Dates: start: 20091223, end: 20091223
  8. MULTIHANCE [Suspect]
     Indication: NUCLEAR MAGNETIC RESONANCE IMAGING
     Route: 042
     Dates: start: 20091223, end: 20091223

REACTIONS (5)
  - AGITATION [None]
  - DYSPNOEA [None]
  - HYPERTENSIVE CRISIS [None]
  - HYPOXIA [None]
  - MALAISE [None]
